FAERS Safety Report 17017938 (Version 4)
Quarter: 2020Q2

REPORT INFORMATION
  Report Type: Report from Study
  Country: EG (occurrence: EG)
  Receive Date: 20191111
  Receipt Date: 20200630
  Transmission Date: 20200713
  Serious: Yes (Hospitalization)
  Sender: FDA-Public Use
  Company Number: EG-SEATTLE GENETICS-2019SGN03880

PATIENT
  Sex: Female

DRUGS (1)
  1. BRENTUXIMAB VEDOTIN [Suspect]
     Active Substance: BRENTUXIMAB VEDOTIN
     Indication: HODGKIN^S DISEASE
     Dosage: UNK
     Route: 042
     Dates: start: 20190926

REACTIONS (5)
  - White blood cell count decreased [Unknown]
  - Hypoaesthesia [Unknown]
  - Product administration error [Unknown]
  - Fatigue [Unknown]
  - Neuropathy peripheral [Unknown]
